FAERS Safety Report 6366776-1 (Version None)
Quarter: 2009Q3

REPORT INFORMATION
  Report Type: 
  Country: None (occurrence: None)
  Receive Date: 20090915
  Receipt Date: 20090902
  Transmission Date: 20100115
  Serious: Yes (Hospitalization)
  Sender: FDA-Public Use
  Company Number: 2009-03606

PATIENT
  Age: 62 Year
  Sex: Male

DRUGS (10)
  1. VELCADE [Suspect]
     Indication: MULTIPLE MYELOMA
     Dosage: 3.5 MG,INTRAVENOUS
     Route: 042
     Dates: start: 20090120, end: 20090508
  2. DECADRON [Suspect]
     Indication: MULTIPLE MYELOMA
     Dosage: 10 MG,  INTRAVENOUS
     Route: 042
     Dates: start: 20090120, end: 20090508
  3. VALSARTAN [Concomitant]
  4. RAMIPRIL [Concomitant]
  5. WARFARIN SODIUM [Concomitant]
  6. LANSOPRAZOLE [Concomitant]
  7. ALLOPURINOL [Concomitant]
  8. OXYCONTIN [Concomitant]
  9. NORVASC [Concomitant]
  10. ACYCLOVIR [Concomitant]

REACTIONS (1)
  - ERYSIPELAS [None]
